FAERS Safety Report 8366281-7 (Version None)
Quarter: 2012Q2

REPORT INFORMATION
  Report Type: 
  Country: None (occurrence: None)
  Receive Date: 20120517
  Receipt Date: 20120514
  Transmission Date: 20120825
  Serious: Yes (Death)
  Sender: FDA-Public Use
  Company Number: PHEH2012US008375

PATIENT
  Sex: Male

DRUGS (3)
  1. TAXOL [Suspect]
  2. ZOMETA [Suspect]
     Dates: start: 20110401
  3. ERBITUX [Suspect]

REACTIONS (2)
  - DEATH [None]
  - MALAISE [None]
